FAERS Safety Report 7283616-7 (Version None)
Quarter: 2011Q1

REPORT INFORMATION
  Report Type: 
  Country: None (occurrence: None)
  Receive Date: 20110209
  Receipt Date: 20110131
  Transmission Date: 20110831
  Serious: Yes (Other)
  Sender: FDA-Public Use
  Company Number: B0697857A

PATIENT
  Age: 83 Year
  Sex: Female
  Weight: 38 kg

DRUGS (3)
  1. LANSOPRAZOLE [Suspect]
     Route: 065
  2. ZANTAC [Suspect]
     Route: 048
     Dates: start: 20080819, end: 20081014
  3. VANCOMYCIN [Concomitant]
     Dates: start: 20080731

REACTIONS (4)
  - OEDEMA [None]
  - DIARRHOEA [None]
  - COLITIS COLLAGENOUS [None]
  - GASTROINTESTINAL SOUNDS ABNORMAL [None]
